FAERS Safety Report 5814424-9 (Version None)
Quarter: 2008Q3

REPORT INFORMATION
  Report Type: 
  Country: None (occurrence: None)
  Receive Date: 20080715
  Receipt Date: 20080630
  Transmission Date: 20090109
  Serious: Yes (Other)
  Sender: FDA-Public Use
  Company Number: 2008S1011471

PATIENT
  Age: 44 Year
  Sex: Female

DRUGS (4)
  1. LISINOPRIL [Suspect]
     Indication: HYPERTENSION
     Dosage: ORAL
     Route: 048
     Dates: start: 20080520, end: 20080613
  2. FERROUS SULFATE TAB [Concomitant]
  3. METOCLOPRAMIDE [Concomitant]
  4. OMEPRAZOLE [Concomitant]

REACTIONS (3)
  - OEDEMA MOUTH [None]
  - OROPHARYNGEAL PAIN [None]
  - STOMATITIS [None]
